FAERS Safety Report 16117647 (Version 1)
Quarter: 2019Q1

REPORT INFORMATION
  Report Type: Spontaneous
  Country: GB (occurrence: GB)
  Receive Date: 20190326
  Receipt Date: 20190326
  Transmission Date: 20190418
  Serious: Yes (Hospitalization, Other)
  Sender: FDA-Public Use
  Company Number: PHHY2019GB062905

PATIENT
  Age: 30 Year

DRUGS (3)
  1. LETROZOLE. [Suspect]
     Active Substance: LETROZOLE
     Indication: INVASIVE LOBULAR BREAST CARCINOMA
     Dosage: UNK
     Route: 065
  2. ZOLADEX [Suspect]
     Active Substance: GOSERELIN ACETATE
     Indication: INVASIVE LOBULAR BREAST CARCINOMA
     Dosage: UNK
     Route: 065
  3. KISQALI [Suspect]
     Active Substance: RIBOCICLIB
     Indication: INVASIVE LOBULAR BREAST CARCINOMA
     Dosage: UNK
     Route: 065
     Dates: start: 20180718

REACTIONS (6)
  - Malignant neoplasm progression [Unknown]
  - BRCA1 gene mutation [Unknown]
  - Invasive lobular breast carcinoma [Unknown]
  - Enterobacter bacteraemia [Unknown]
  - Metastases to peritoneum [Unknown]
  - Ascites [Unknown]

NARRATIVE: CASE EVENT DATE: 20180816
